FAERS Safety Report 18845288 (Version 1)
Quarter: 2021Q1

REPORT INFORMATION
  Report Type: Report from Study
  Country: US (occurrence: US)
  Receive Date: 20210203
  Receipt Date: 20210203
  Transmission Date: 20210419
  Serious: No
  Sender: FDA-Public Use
  Company Number: US-EXELIXIS-CABO-20031455

PATIENT
  Age: 76 Year
  Sex: Male

DRUGS (1)
  1. CABOMETYX [Suspect]
     Active Substance: CABOZANTINIB S-MALATE
     Indication: HEPATIC CANCER
     Dosage: 40 MG
     Dates: start: 20200630, end: 20200803

REACTIONS (3)
  - Blood alkaline phosphatase increased [Unknown]
  - Blood pressure decreased [Recovering/Resolving]
  - Malignant neoplasm progression [Unknown]

NARRATIVE: CASE EVENT DATE: 20200803
